FAERS Safety Report 9666568 (Version 1)
Quarter: 2013Q4

REPORT INFORMATION
  Report Type: Spontaneous
  Country: JP (occurrence: JP)
  Receive Date: 20131104
  Receipt Date: 20131104
  Transmission Date: 20140711
  Serious: Yes (Other)
  Sender: FDA-Public Use
  Company Number: JP-ELI_LILLY_AND_COMPANY-JP201310009611

PATIENT
  Sex: 0
  Weight: 4.17 kg

DRUGS (2)
  1. HUMALOG LISPRO [Suspect]
     Indication: LATENT AUTOIMMUNE DIABETES IN ADULTS
     Dosage: 3 U MORNING, 2 U NOON AND 3 U EVENING, TID
     Route: 058
     Dates: start: 20120202
  2. HUMALOG LISPRO [Suspect]
     Dosage: 5 U MORNING, 4 U NOON AND 9 U EVENING, TID
     Route: 058

REACTIONS (2)
  - Macrosomia [Recovered/Resolved]
  - Foetal exposure during pregnancy [Recovered/Resolved]
